FAERS Safety Report 19130364 (Version 3)
Quarter: 2021Q2

REPORT INFORMATION
  Report Type: Report from Study
  Country: PL (occurrence: PL)
  Receive Date: 20210414
  Receipt Date: 20210525
  Transmission Date: 20210717
  Serious: Yes (Hospitalization)
  Sender: FDA-Public Use
  Company Number: PL-ROCHE-2807317

PATIENT
  Age: 37 Year
  Sex: Male
  Weight: 90 kg

DRUGS (11)
  1. METHYLPREDNISOLONE. [Suspect]
     Active Substance: METHYLPREDNISOLONE
     Route: 042
     Dates: start: 20191119, end: 20191119
  2. METHYLPREDNISOLONE. [Suspect]
     Active Substance: METHYLPREDNISOLONE
     Route: 042
     Dates: start: 20201116, end: 20201116
  3. METHYLPREDNISOLONE. [Suspect]
     Active Substance: METHYLPREDNISOLONE
     Route: 042
     Dates: start: 20200520, end: 20200520
  4. METHYLPREDNISOLONE. [Suspect]
     Active Substance: METHYLPREDNISOLONE
     Route: 042
     Dates: start: 20190104, end: 20190104
  5. METHYLPREDNISOLONE. [Suspect]
     Active Substance: METHYLPREDNISOLONE
     Route: 042
     Dates: start: 20210513, end: 20210513
  6. SYMFAXIN ER [Concomitant]
     Route: 048
     Dates: start: 20180921
  7. METHYLPREDNISOLONE. [Suspect]
     Active Substance: METHYLPREDNISOLONE
     Indication: PREMEDICATION
     Route: 042
     Dates: start: 20181221, end: 20181221
  8. METHYLPREDNISOLONE. [Suspect]
     Active Substance: METHYLPREDNISOLONE
     Route: 042
     Dates: start: 20190621, end: 20190621
  9. PARACETAMOL [Concomitant]
     Active Substance: ACETAMINOPHEN
     Indication: PREMEDICATION
     Dosage: SUBSEQUENT DOSES: 04/JAN/2019, 21/JUN/2019, 19/NOV/2019, 20/MAY/2020, 16/NOV/2020
     Route: 048
     Dates: start: 20181221, end: 20181221
  10. OCRELIZUMAB. [Suspect]
     Active Substance: OCRELIZUMAB
     Indication: RELAPSING-REMITTING MULTIPLE SCLEROSIS
     Dosage: DATE OF MOST RECENT DOSE OF OCRELIZUMAB PRIOR TO THIS EVENT ONSET: 16/NOV/2020?DOSE OF LAST OCRELIZU
     Route: 042
     Dates: start: 20181221
  11. ZYRTEC (POLAND) [Concomitant]
     Indication: PREMEDICATION
     Dosage: SUBSEQUENT DOSES: 04/JAN/2019, 21/JUN/2019, 19/NOV/2019, 20/MAY/2020, 16/NOV/2020
     Route: 048
     Dates: start: 20181221, end: 20181221

REACTIONS (1)
  - COVID-19 [Recovered/Resolved]

NARRATIVE: CASE EVENT DATE: 20210329
